FAERS Safety Report 9373228 (Version 2)
Quarter: 2013Q3

REPORT INFORMATION
  Report Type: Spontaneous
  Country: US (occurrence: US)
  Receive Date: 20130627
  Receipt Date: 20130807
  Transmission Date: 20140515
  Serious: Yes (Hospitalization)
  Sender: FDA-Public Use
  Company Number: US-INCYTE CORPORATION-2013IN001372

PATIENT
  Sex: Female

DRUGS (20)
  1. JAKAFI [Suspect]
     Dosage: 20 MG, BID
     Route: 048
     Dates: start: 20130424, end: 2013
  2. JAKAFI [Suspect]
     Dosage: 20 MG, QD
     Route: 048
     Dates: start: 2013, end: 2013
  3. JAKAFI [Suspect]
     Dosage: 10 MG, BID
     Route: 048
     Dates: start: 2013
  4. COUMADIN [Concomitant]
     Dosage: 1 MG TABLET
  5. ASPIRIN [Concomitant]
     Dosage: 325 MG TABLET
  6. CARDIZEM [Concomitant]
     Dosage: 120 MG TABLET
  7. COLACE [Concomitant]
     Dosage: 100 MG CAPSULE
  8. DIOVAN [Concomitant]
     Dosage: 80 MG TABLET
  9. FLUOXETINE [Concomitant]
     Dosage: 10 MG CAP
  10. KLOR-CON [Concomitant]
     Dosage: 10 MEQ TAB
  11. KLOR-CON [Concomitant]
     Dosage: 20 MEQ TAB EXTENDED RELEASE
  12. LASIX [Concomitant]
     Dosage: 40 MG TABLET
  13. LEVAQUIN [Concomitant]
     Dosage: 500 MG TAB
  14. MIRALAX [Concomitant]
     Dosage: 17 GRAM POWDER PACKET
     Route: 048
  15. NORVASC [Concomitant]
     Dosage: 10 MG TABLET
  16. OMEPRAZOLE [Concomitant]
     Dosage: 40 MG CAP
  17. PEGASYS [Concomitant]
     Dosage: 180 MCG/ML
     Route: 058
  18. TERAZOSIN [Concomitant]
     Dosage: 2 MG CAP
  19. TYLENOL [Concomitant]
     Dosage: 650 MG TABLET
  20. ZOFRAN [Concomitant]

REACTIONS (4)
  - Dyspnoea [Unknown]
  - Anaemia [None]
  - Fall [Unknown]
  - Haemorrhage [Unknown]
